FAERS Safety Report 19514999 (Version 3)
Quarter: 2022Q1

REPORT INFORMATION
  Report Type: Report from Study
  Country: GB (occurrence: GB)
  Receive Date: 20210709
  Receipt Date: 20220318
  Transmission Date: 20220424
  Serious: Yes (Other)
  Sender: FDA-Public Use
  Company Number: GB-GLAXOSMITHKLINE-GB2021EME149053

PATIENT
  Age: 79 Year
  Sex: Female

DRUGS (1)
  1. MEPOLIZUMAB [Suspect]
     Active Substance: MEPOLIZUMAB
     Indication: Asthma
     Dosage: 100 MG, Z(EVERY 4 WEEKS)
     Route: 058
     Dates: start: 20200506

REACTIONS (10)
  - Diabetes mellitus [Unknown]
  - Loss of consciousness [Unknown]
  - Decreased appetite [Unknown]
  - Thirst decreased [Unknown]
  - Insomnia [Unknown]
  - Vomiting [Unknown]
  - Illness [Unknown]
  - Weight decreased [Unknown]
  - Stress [Unknown]
  - Foot fracture [Unknown]
